FAERS Safety Report 20863451 (Version 5)
Quarter: 2022Q4

REPORT INFORMATION
  Report Type: Spontaneous
  Country: US (occurrence: US)
  Receive Date: 20220523
  Receipt Date: 20221116
  Transmission Date: 20230113
  Serious: Yes (Other)
  Sender: FDA-Public Use
  Company Number: US-PFIZER INC-202200737933

PATIENT
  Age: 76 Year
  Sex: Female

DRUGS (1)
  1. XELJANZ [Suspect]
     Active Substance: TOFACITINIB CITRATE
     Dosage: 10 MG
     Dates: start: 20220426, end: 2022

REACTIONS (8)
  - Eye operation [Unknown]
  - Lymphoedema [Unknown]
  - Contusion [Unknown]
  - Increased tendency to bruise [Unknown]
  - Accidental overdose [Unknown]
  - Faeces soft [Unknown]
  - Illness [Unknown]
  - Nausea [Unknown]

NARRATIVE: CASE EVENT DATE: 20220101
